FAERS Safety Report 24815052 (Version 1)
Quarter: 2025Q1

REPORT INFORMATION
  Report Type: Report from Study
  Country: CN (occurrence: CN)
  Receive Date: 20250107
  Receipt Date: 20250107
  Transmission Date: 20250408
  Serious: Yes (Hospitalization)
  Sender: PFIZER
  Company Number: CN-TAKEDA-2024TUS034999

PATIENT
  Age: 56 Year
  Sex: Female
  Weight: 63 kg

DRUGS (6)
  1. BRENTUXIMAB VEDOTIN [Suspect]
     Active Substance: BRENTUXIMAB VEDOTIN
     Indication: Angioimmunoblastic T-cell lymphoma
     Dosage: 100 MILLIGRAM, Q3WEEKS
     Route: 041
     Dates: start: 20240402
  2. RESERPINE [Concomitant]
     Active Substance: RESERPINE
     Indication: Hypertension
     Dosage: UNK UNK, 1X/DAY
     Route: 048
     Dates: start: 2004
  3. NITRENDIPINE [Concomitant]
     Active Substance: NITRENDIPINE
     Indication: Hypertension
     Dosage: UNK UNK, 1X/DAY
     Route: 048
     Dates: start: 2004
  4. METFORMIN HYDROCHLORIDE [Concomitant]
     Active Substance: METFORMIN HYDROCHLORIDE
     Indication: Type 2 diabetes mellitus
     Dosage: UNK UNK, 1X/DAY
     Route: 048
     Dates: start: 2021
  5. SODIUM BICARBONATE [Concomitant]
     Active Substance: SODIUM BICARBONATE
     Indication: Urine alkalinisation therapy
     Dosage: 40 MILLILITER, QD
     Route: 042
     Dates: start: 20240402, end: 20240402
  6. APREPITANT [Concomitant]
     Active Substance: APREPITANT
     Indication: Gastrointestinal disorder prophylaxis
     Dosage: UNK UNK, 1X/DAY
     Route: 048
     Dates: start: 20240402, end: 20240410

REACTIONS (4)
  - Dermatitis [Recovered/Resolved]
  - Diabetic retinopathy [Unknown]
  - Pyrexia [Recovered/Resolved]
  - Off label use [Unknown]

NARRATIVE: CASE EVENT DATE: 20240402
